FAERS Safety Report 4886807-5 (Version None)
Quarter: 2006Q1

REPORT INFORMATION
  Report Type: 
  Country: None (occurrence: None)
  Receive Date: 20060119
  Receipt Date: 20060119
  Transmission Date: 20060701
  Serious: Yes (Hospitalization)
  Sender: FDA-Public Use
  Company Number: None

PATIENT
  Age: 66 Year
  Sex: Male

DRUGS (2)
  1. AMPICILLIN AND SULBACTAM [Suspect]
     Indication: INFECTION
     Dosage: 1.5 GRAMS   EVERY 8 HOURS  IV
     Route: 042
     Dates: start: 20060110, end: 20060112
  2. AMPICILLIN AND SULBACTAM [Suspect]
     Indication: URINARY TRACT INFECTION
     Dosage: 1.5 GRAMS   EVERY 8 HOURS  IV
     Route: 042
     Dates: start: 20060110, end: 20060112

REACTIONS (6)
  - BLISTER [None]
  - CYANOSIS [None]
  - INFUSION SITE REACTION [None]
  - OEDEMA PERIPHERAL [None]
  - PERIPHERAL COLDNESS [None]
  - RADIAL PULSE ABNORMAL [None]
